FAERS Safety Report 13566144 (Version 1)
Quarter: 2017Q2

REPORT INFORMATION
  Report Type: Spontaneous
  Country: US (occurrence: US)
  Receive Date: 20170521
  Receipt Date: 20170521
  Transmission Date: 20170830
  Serious: Yes (Other)
  Sender: FDA-Public Use
  Company Number: PHEH2017US014157

PATIENT
  Age: 69 Year
  Sex: Female

DRUGS (2)
  1. ZYKADIA [Suspect]
     Active Substance: CERITINIB
     Dosage: 400 MG, UNK
     Route: 065
     Dates: end: 20170414
  2. ZYKADIA [Suspect]
     Active Substance: CERITINIB
     Indication: LUNG ADENOCARCINOMA
     Dosage: 750 MG, UNK
     Route: 065
     Dates: start: 2016

REACTIONS (5)
  - Lung adenocarcinoma [Unknown]
  - Drug intolerance [Unknown]
  - Metastatic neoplasm [Unknown]
  - Nodule [Unknown]
  - Malignant neoplasm progression [Unknown]

NARRATIVE: CASE EVENT DATE: 20170309
